FAERS Safety Report 8082789-6 (Version None)
Quarter: 2012Q1

REPORT INFORMATION
  Report Type: 
  Country: None (occurrence: None)
  Receive Date: 20120127
  Receipt Date: 20110210
  Transmission Date: 20120608
  Serious: No
  Sender: FDA-Public Use
  Company Number: US-ABBOTT-11P-163-0703976-00

PATIENT
  Age: 48 Year
  Sex: Female

DRUGS (7)
  1. HUMIRA [Suspect]
     Indication: PSORIASIS
     Dates: start: 20110112
  2. HUMIRA [Suspect]
     Indication: PSORIASIS
     Dates: start: 20110209
  3. CYMBALTA [Concomitant]
     Indication: ANXIOLYTIC THERAPY
  4. DIOVAN HCT [Concomitant]
     Indication: HYPERTENSION
  5. NEXIUM [Concomitant]
     Indication: GASTRIC DISORDER
  6. AMBIEN [Concomitant]
     Indication: SLEEP DISORDER
  7. AMBIEN [Concomitant]

REACTIONS (2)
  - INJECTION SITE PAIN [None]
  - DRUG DOSE OMISSION [None]
